FAERS Safety Report 5009171-X (Version None)
Quarter: 2006Q2

REPORT INFORMATION
  Report Type: 
  Country: None (occurrence: None)
  Receive Date: 20060519
  Receipt Date: 20060510
  Transmission Date: 20061013
  Serious: Yes (Death, Life-Threatening)
  Sender: FDA-Public Use
  Company Number: 2006-05-0922

PATIENT
  Age: 60 Year
  Sex: Female
  Weight: 63 kg

DRUGS (4)
  1. TEMODAL [Suspect]
     Indication: GLIOBLASTOMA MULTIFORME
     Dosage: 120MG 4-5DY/W ORAL
     Route: 048
     Dates: start: 20060314, end: 20060424
  2. CELESTONE [Concomitant]
  3. EPILIM [Concomitant]
  4. RADIATION THERAPY [Concomitant]

REACTIONS (2)
  - DRUG RESISTANCE [None]
  - PANCYTOPENIA [None]
